FAERS Safety Report 16637161 (Version 1)
Quarter: 2019Q3

REPORT INFORMATION
  Report Type: Spontaneous
  Country: US (occurrence: US)
  Receive Date: 20190726
  Receipt Date: 20190726
  Transmission Date: 20191004
  Serious: No
  Sender: FDA-Public Use
  Company Number: US-JNJFOC-20190623519

PATIENT
  Age: 29 Year
  Sex: Female
  Weight: 52.66 kg

DRUGS (1)
  1. ORTHO TRI CYCLEN [Suspect]
     Active Substance: ETHINYL ESTRADIOL\NORGESTIMATE
     Indication: CONTRACEPTION
     Route: 048
     Dates: start: 201806

REACTIONS (2)
  - Product dispensing error [Unknown]
  - Expired product administered [Unknown]

NARRATIVE: CASE EVENT DATE: 201906
